FAERS Safety Report 6906582-X (Version None)
Quarter: 2010Q3

REPORT INFORMATION
  Report Type: 
  Country: None (occurrence: None)
  Receive Date: 20100804
  Receipt Date: 20100719
  Transmission Date: 20110219
  Serious: Yes (Hospitalization)
  Sender: FDA-Public Use
  Company Number: US-BAYER-201028443NA

PATIENT
  Age: 39 Year
  Sex: Female

DRUGS (2)
  1. MIRENA [Suspect]
     Indication: MENORRHAGIA
     Dosage: FREQUENCY: CONTINUOUS
     Route: 015
     Dates: start: 20030101, end: 20080101
  2. MIRENA [Suspect]
     Dosage: FREQUENCY: CONTINUOUS
     Route: 015
     Dates: start: 20080101, end: 20091201

REACTIONS (6)
  - ECTOPIC PREGNANCY [None]
  - ENDOMETRIOSIS [None]
  - OVARIAN CYST [None]
  - PELVIC PAIN [None]
  - UTERINE DISORDER [None]
  - VAGINAL HAEMORRHAGE [None]
